FAERS Safety Report 8481048-7 (Version None)
Quarter: 2012Q3

REPORT INFORMATION
  Report Type: 
  Country: None (occurrence: None)
  Receive Date: 20120702
  Receipt Date: 20120625
  Transmission Date: 20120928
  Serious: Yes (Disabling)
  Sender: FDA-Public Use
  Company Number: PHEH2012US011549

PATIENT
  Sex: Female
  Weight: 160 kg

DRUGS (1)
  1. VIVELLE-DOT [Suspect]
     Dosage: 100 UG, QW2

REACTIONS (4)
  - DRUG INEFFECTIVE [None]
  - HOT FLUSH [None]
  - MOOD ALTERED [None]
  - SLEEP DISORDER [None]
